FAERS Safety Report 5728272-1 (Version None)
Quarter: 2008Q2

REPORT INFORMATION
  Report Type: 
  Country: None (occurrence: None)
  Receive Date: 20080430
  Receipt Date: 20080125
  Transmission Date: 20081010
  Serious: No
  Sender: FDA-Public Use
  Company Number: 2008PV034041

PATIENT
  Age: 56 Year
  Sex: Female

DRUGS (9)
  1. SYMLIN [Suspect]
     Indication: TYPE 2 DIABETES MELLITUS
     Dosage: 60 MCG;SC
     Route: 058
     Dates: start: 20080122
  2. SYMLIN [Suspect]
     Indication: TYPE 2 DIABETES MELLITUS
     Dosage: 36 MCG;TID;SC ; 30 MCG;TID;SC ; 24 MCG;TID;SC
     Route: 058
     Dates: start: 20080101, end: 20080101
  3. SYMLIN [Suspect]
     Indication: TYPE 2 DIABETES MELLITUS
     Dosage: 36 MCG;TID;SC ; 30 MCG;TID;SC ; 24 MCG;TID;SC
     Route: 058
     Dates: start: 20080101, end: 20080121
  4. SYMLIN [Suspect]
     Indication: TYPE 2 DIABETES MELLITUS
     Dosage: 36 MCG;TID;SC ; 30 MCG;TID;SC ; 24 MCG;TID;SC
     Route: 058
     Dates: start: 20071201
  5. LANTUS [Concomitant]
  6. ORAL ANTIDIABETICS [Concomitant]
  7. METFORMIN [Concomitant]
  8. ACTOS [Concomitant]
  9. GLIMEPIRIDE [Concomitant]

REACTIONS (2)
  - DECREASED APPETITE [None]
  - DRUG PRESCRIBING ERROR [None]
